FAERS Safety Report 6346890-7 (Version None)
Quarter: 2009Q3

REPORT INFORMATION
  Report Type: 
  Country: None (occurrence: None)
  Receive Date: 20090908
  Receipt Date: 20090908
  Transmission Date: 20100115
  Serious: Yes (Other)
  Sender: FDA-Public Use
  Company Number: None

PATIENT
  Age: 51 Year
  Sex: Male
  Weight: 131.5431 kg

DRUGS (4)
  1. CLONAZEPAM [Suspect]
     Dosage: 1MG BID + PRN PO
     Route: 048
     Dates: start: 20060208
  2. SEROQUEL [Concomitant]
  3. PAXIL CR [Concomitant]
  4. LUNESTA [Concomitant]

REACTIONS (2)
  - MALAISE [None]
  - PRODUCT SUBSTITUTION ISSUE [None]
